FAERS Safety Report 6702720-2 (Version None)
Quarter: 2010Q2

REPORT INFORMATION
  Report Type: 
  Country: None (occurrence: None)
  Receive Date: 20100428
  Receipt Date: 20100420
  Transmission Date: 20101027
  Serious: Yes (Hospitalization)
  Sender: FDA-Public Use
  Company Number: 565635

PATIENT
  Age: 21 Year
  Sex: Male
  Weight: 81.6475 kg

DRUGS (3)
  1. VANCOMYCIN HCL [Suspect]
     Indication: DRUG USE FOR UNKNOWN INDICATION
     Dosage: 1 G GRAM(S), 12 HOUR, INTRAVENOUS
     Route: 042
  2. (CLOXACILLIN) [Concomitant]
  3. CODEINE SULFATE [Concomitant]

REACTIONS (3)
  - CHILLS [None]
  - RASH [None]
  - TREMOR [None]
